FAERS Safety Report 20538732 (Version 1)
Quarter: 2022Q1

REPORT INFORMATION
  Report Type: Report from Study
  Country: AU (occurrence: AU)
  Receive Date: 20220302
  Receipt Date: 20220302
  Transmission Date: 20220423
  Serious: Yes (Other)
  Sender: FDA-Public Use
  Company Number: AU-JNJFOC-20210853437

PATIENT
  Age: 62 Year
  Sex: Female

DRUGS (3)
  1. SPORANOX [Suspect]
     Active Substance: ITRACONAZOLE
     Indication: Pneumonia fungal
     Route: 065
     Dates: start: 20200723
  2. AMLODIPINE [Suspect]
     Active Substance: AMLODIPINE BESYLATE
     Indication: Product used for unknown indication
     Route: 065
     Dates: start: 202008
  3. MEPOLIZUMAB [Suspect]
     Active Substance: MEPOLIZUMAB
     Indication: Asthma
     Route: 058
     Dates: start: 20200918

REACTIONS (5)
  - Hallucination [Unknown]
  - Lower respiratory tract infection fungal [Recovering/Resolving]
  - Hypertension [Not Recovered/Not Resolved]
  - Night sweats [Unknown]
  - Oedema peripheral [Unknown]

NARRATIVE: CASE EVENT DATE: 20200723
